FAERS Safety Report 8967100 (Version 3)
Quarter: 2013Q2

REPORT INFORMATION
  Report Type: Spontaneous
  Country: US (occurrence: US)
  Receive Date: 20121214
  Receipt Date: 20130515
  Transmission Date: 20140414
  Serious: Yes (Death, Hospitalization)
  Sender: FDA-Public Use
  Company Number: US-B.I. PHARMACEUTICALS,INC./RIDGEFIELD-2012-BI-02930BP

PATIENT
  Age: 68 Year
  Sex: Male
  Weight: 81.65 kg

DRUGS (12)
  1. PRADAXA [Suspect]
     Indication: ANTICOAGULANT THERAPY
     Dosage: 300 MG
     Route: 048
     Dates: start: 20111110, end: 20120131
  2. PRADAXA [Suspect]
     Indication: ATRIAL FIBRILLATION
  3. NORVASC [Concomitant]
     Dosage: 5 MG
  4. ATENOLOL [Concomitant]
     Dates: start: 2011
  5. GLIMEPIRIDE [Concomitant]
  6. LISINOPRIL [Concomitant]
  7. METFORMIN [Concomitant]
  8. ACTOS [Concomitant]
  9. DILTIAZEM [Concomitant]
  10. ONGLYZA [Concomitant]
  11. METOPROLOL [Concomitant]
  12. GLYBURIDE [Concomitant]

REACTIONS (4)
  - Gastrointestinal haemorrhage [Fatal]
  - Gingival bleeding [Unknown]
  - Prothrombin time prolonged [Unknown]
  - International normalised ratio increased [Unknown]
